FAERS Safety Report 17855625 (Version 1)
Quarter: 2020Q2

REPORT INFORMATION
  Report Type: Other
  Country: US (occurrence: US)
  Receive Date: 20200603
  Receipt Date: 20200603
  Transmission Date: 20200714
  Serious: Yes (Other)
  Sender: FDA-Public Use
  Company Number: US-HIKMA PHARMACEUTICALS USA INC.-US-H14001-20-02651

PATIENT
  Sex: Female

DRUGS (9)
  1. MIDAZOLAM. [Suspect]
     Active Substance: MIDAZOLAM
     Indication: MAINTENANCE OF ANAESTHESIA
     Route: 065
  2. DEXMEDETOMIDINE. [Suspect]
     Active Substance: DEXMEDETOMIDINE
     Indication: MAINTENANCE OF ANAESTHESIA
     Dosage: 0.6 MCG/KG/HR
     Route: 065
  3. VECURONIUM [Concomitant]
     Active Substance: VECURONIUM BROMIDE
     Route: 065
  4. PROPOFOL. [Suspect]
     Active Substance: PROPOFOL
     Indication: GENERAL ANAESTHESIA
     Route: 065
  5. VECURONIUM [Concomitant]
     Active Substance: VECURONIUM BROMIDE
     Indication: MUSCLE RELAXANT THERAPY
     Route: 065
  6. MIDAZOLAM. [Suspect]
     Active Substance: MIDAZOLAM
     Indication: PRODUCT USED FOR UNKNOWN INDICATION
     Route: 065
  7. MIDAZOLAM. [Suspect]
     Active Substance: MIDAZOLAM
     Route: 065
  8. LIDOCAINE. [Suspect]
     Active Substance: LIDOCAINE
     Indication: GENERAL ANAESTHESIA
     Route: 065
  9. PROPOFOL. [Suspect]
     Active Substance: PROPOFOL
     Route: 065

REACTIONS (1)
  - Unwanted awareness during anaesthesia [Unknown]
